FAERS Safety Report 6639963-2 (Version None)
Quarter: 2010Q1

REPORT INFORMATION
  Report Type: 
  Country: None (occurrence: None)
  Receive Date: 20100315
  Receipt Date: 20100308
  Transmission Date: 20100710
  Serious: Yes (Hospitalization)
  Sender: FDA-Public Use
  Company Number: 2010SP014233

PATIENT
  Age: 69 Year
  Sex: Male

DRUGS (7)
  1. NASONEX [Suspect]
     Indication: DRUG USE FOR UNKNOWN INDICATION
     Dosage: HAS
     Route: 045
     Dates: start: 20091201, end: 20091206
  2. HEPARIN [Suspect]
     Indication: DRUG USE FOR UNKNOWN INDICATION
  3. LOVENOX [Suspect]
     Indication: DRUG USE FOR UNKNOWN INDICATION
  4. ESIDRIX [Suspect]
     Indication: DRUG USE FOR UNKNOWN INDICATION
     Dosage: PO
     Route: 048
     Dates: start: 20091024, end: 20091210
  5. PANENZA (INFLUENZA VACCINES) [Suspect]
     Indication: DRUG USE FOR UNKNOWN INDICATION
     Dosage: ONCE
     Dates: start: 20091201
  6. SYMBICORT [Concomitant]
  7. IMOVANE [Concomitant]

REACTIONS (5)
  - COLONIC POLYP [None]
  - GINGIVAL BLEEDING [None]
  - HYPERTHERMIA [None]
  - INTERSTITIAL LUNG DISEASE [None]
  - THROMBOCYTOPENIC PURPURA [None]
